FAERS Safety Report 11012630 (Version 1)
Quarter: 2015Q2

REPORT INFORMATION
  Report Type: Spontaneous
  Country: US (occurrence: None)
  Receive Date: 20150410
  Receipt Date: 20150410
  Transmission Date: 20150821
  Serious: No
  Sender: FDA-Public Use
  Company Number: None

PATIENT
  Age: 51 Year
  Sex: Female

DRUGS (3)
  1. FISH OIL [Concomitant]
     Active Substance: FISH OIL
  2. MULTI VITAMIN [Concomitant]
     Active Substance: VITAMINS
  3. SABRA TOPICAL ANESTHETIC [Suspect]
     Active Substance: BENZOCAINE
     Dates: start: 20150401, end: 20150408

REACTIONS (5)
  - Pain [None]
  - Abdominal discomfort [None]
  - Headache [None]
  - Product quality issue [None]
  - Dyspepsia [None]

NARRATIVE: CASE EVENT DATE: 20150407
